FAERS Safety Report 8145400-1 (Version None)
Quarter: 2012Q1

REPORT INFORMATION
  Report Type: 
  Country: None (occurrence: None)
  Receive Date: 20120217
  Receipt Date: 20120209
  Transmission Date: 20120608
  Serious: Yes (Hospitalization, Other)
  Sender: FDA-Public Use
  Company Number: BR-ASTRAZENECA-2007UW26395

PATIENT
  Age: 38 Year
  Sex: Male
  Weight: 89 kg

DRUGS (23)
  1. SEROQUEL [Suspect]
     Indication: SCHIZOAFFECTIVE DISORDER
     Route: 048
     Dates: start: 20030101
  2. SEROQUEL [Suspect]
     Route: 048
     Dates: start: 20100101
  3. CLONAZEPAM [Concomitant]
     Dosage: THREE TIMES A DAY
     Route: 048
     Dates: start: 20040101
  4. NEOZINE [Concomitant]
     Dates: start: 20080101
  5. SEROQUEL [Suspect]
     Route: 048
     Dates: start: 20030101
  6. ZYPREXA [Concomitant]
  7. LITHIUM CARBONATE [Concomitant]
     Dosage: TWICE A DAY
     Route: 048
     Dates: start: 20040101, end: 20110201
  8. SEROQUEL [Suspect]
     Route: 048
     Dates: start: 20040101, end: 20100101
  9. SEROQUEL [Suspect]
     Route: 048
     Dates: start: 20100101, end: 20100101
  10. PHENOBARBITAL TAB [Concomitant]
     Dates: start: 20080101
  11. SEROQUEL [Suspect]
     Indication: BIPOLAR DISORDER
     Route: 048
     Dates: start: 20030101
  12. SEROQUEL [Suspect]
     Route: 048
  13. RISPERIDONE [Concomitant]
  14. CLONAZEPAM [Concomitant]
     Dosage: TWICE A DAY
     Route: 048
     Dates: start: 20080101
  15. DEPAKOTE [Concomitant]
     Route: 048
     Dates: start: 20080101
  16. SEROQUEL [Suspect]
     Route: 048
     Dates: start: 20100101, end: 20100101
  17. SEROQUEL [Suspect]
     Route: 048
     Dates: start: 20100101
  18. SEROQUEL [Suspect]
     Route: 048
  19. AMPLICTIL [Concomitant]
  20. DEPAKOTE [Concomitant]
     Route: 048
     Dates: start: 20110201
  21. SEROQUEL [Suspect]
     Route: 048
     Dates: start: 20040101, end: 20100101
  22. SEROQUEL [Suspect]
     Route: 048
     Dates: start: 20030101
  23. LITHIUM CARBONATE [Concomitant]
     Route: 048
     Dates: start: 20110201

REACTIONS (12)
  - EJACULATION DISORDER [None]
  - PAIN [None]
  - SUICIDAL IDEATION [None]
  - DIZZINESS [None]
  - ASTHENOPIA [None]
  - MANIA [None]
  - DRY MOUTH [None]
  - INSOMNIA [None]
  - STRESS [None]
  - THOUGHT BLOCKING [None]
  - EAR DISCOMFORT [None]
  - HYPERSOMNIA [None]
